FAERS Safety Report 6867565-1 (Version None)
Quarter: 2010Q3

REPORT INFORMATION
  Report Type: 
  Country: None (occurrence: None)
  Receive Date: 20100722
  Receipt Date: 20100713
  Transmission Date: 20110219
  Serious: Yes (Life-Threatening, Hospitalization)
  Sender: FDA-Public Use
  Company Number: CA-AMGEN-US349556

PATIENT
  Sex: Male
  Weight: 95.3 kg

DRUGS (6)
  1. ENBREL [Suspect]
     Indication: PSORIASIS
     Route: 058
     Dates: start: 20060921, end: 20090528
  2. DOVOBET [Concomitant]
     Route: 061
     Dates: start: 20060112
  3. DOVOBET [Concomitant]
     Route: 061
     Dates: start: 20090714
  4. BETAMETHASONE VALERATE [Concomitant]
     Route: 061
     Dates: start: 20070829
  5. CETIRIZINE HYDROCHLORIDE [Concomitant]
     Route: 048
     Dates: start: 20080612
  6. TYLENOL [Concomitant]
     Route: 048
     Dates: start: 20090528

REACTIONS (1)
  - MENINGITIS BACTERIAL [None]
